FAERS Safety Report 7692782-0 (Version None)
Quarter: 2011Q3

REPORT INFORMATION
  Report Type: 
  Country: None (occurrence: None)
  Receive Date: 20110815
  Receipt Date: 20110805
  Transmission Date: 20111222
  Serious: Yes (Other)
  Sender: FDA-Public Use
  Company Number: CL-333-2011

PATIENT
  Age: 41 Year
  Sex: Male
  Weight: 86 kg

DRUGS (2)
  1. METRONIDAZOLE [Suspect]
     Indication: TOOTH INFECTION
     Dosage: TDS, ORAL ROUTE
     Route: 048
     Dates: start: 20090518
  2. METRONIDAZOLE [Suspect]
     Indication: GINGIVAL ABSCESS
     Dosage: TDS, ORAL ROUTE
     Route: 048
     Dates: start: 20090518

REACTIONS (7)
  - SUNBURN [None]
  - DRUG HYPERSENSITIVITY [None]
  - FATIGUE [None]
  - SOMNOLENCE [None]
  - HEADACHE [None]
  - DIZZINESS [None]
  - PHOTOSENSITIVITY REACTION [None]
